FAERS Safety Report 8698194 (Version 2)
Quarter: 2013Q4

REPORT INFORMATION
  Report Type: Spontaneous
  Country: US (occurrence: US)
  Receive Date: 20120802
  Receipt Date: 20131106
  Transmission Date: 20140711
  Serious: Yes (Life-Threatening, Hospitalization, Other)
  Sender: FDA-Public Use
  Company Number: US-009507513-1207USA010680

PATIENT
  Age: 43 Year
  Sex: Male

DRUGS (4)
  1. ZOCOR [Suspect]
     Route: 048
  2. IBUPROFEN [Suspect]
     Dosage: 400 MG, Q8H
  3. PRINIVIL [Suspect]
     Route: 048
  4. CLONIDINE [Suspect]

REACTIONS (4)
  - Renal tubular necrosis [Unknown]
  - Liver disorder [Unknown]
  - Hepatic failure [Unknown]
  - Granulomatous liver disease [Unknown]
